FAERS Safety Report 16819545 (Version 3)
Quarter: 2020Q1

REPORT INFORMATION
  Report Type: Report from Study
  Country: US (occurrence: US)
  Receive Date: 20190917
  Receipt Date: 20200212
  Transmission Date: 20200409
  Serious: Yes (Hospitalization)
  Sender: FDA-Public Use
  Company Number: US-ACTELION-A-US2018-179704

PATIENT
  Age: 71 Year
  Sex: Female
  Weight: 82.54 kg

DRUGS (20)
  1. COLCHICINE. [Concomitant]
     Active Substance: COLCHICINE
     Dosage: UNK
     Dates: start: 20190825
  2. DRONEDARONE [Concomitant]
     Active Substance: DRONEDARONE
     Dosage: UNK
     Dates: start: 20190825
  3. FUROSEMIDE. [Concomitant]
     Active Substance: FUROSEMIDE
     Dosage: UNK
     Dates: start: 20190825
  4. UPTRAVI [Suspect]
     Active Substance: SELEXIPAG
     Dosage: 1400MCG IN AM AND 1600MCG IN PM
     Route: 048
  5. XARELTO [Concomitant]
     Active Substance: RIVAROXABAN
  6. REMODULIN [Concomitant]
     Active Substance: TREPROSTINIL
  7. LEVOTHYROXINE. [Concomitant]
     Active Substance: LEVOTHYROXINE
     Dosage: UNK
     Dates: start: 20190825
  8. PROTONIX [Concomitant]
     Active Substance: PANTOPRAZOLE SODIUM
     Dosage: UNK
     Dates: start: 20190825
  9. ZETIA [Concomitant]
     Active Substance: EZETIMIBE
     Dosage: UNK
     Dates: start: 20190825
  10. OPSUMIT [Suspect]
     Active Substance: MACITENTAN
     Indication: PULMONARY ARTERIAL HYPERTENSION
     Dosage: 10 MG, QD
     Route: 048
     Dates: start: 20180426
  11. UPTRAVI [Suspect]
     Active Substance: SELEXIPAG
     Dosage: 1200 MCG, BID
     Route: 048
  12. ATORVASTATIN [Concomitant]
     Active Substance: ATORVASTATIN
     Dosage: UNK
     Dates: start: 20190825
  13. FOLIC ACID. [Concomitant]
     Active Substance: FOLIC ACID
     Dosage: UNK
     Dates: start: 20190825
  14. UPTRAVI [Suspect]
     Active Substance: SELEXIPAG
     Dosage: 1000 MCG, BID
     Route: 048
  15. UPTRAVI [Suspect]
     Active Substance: SELEXIPAG
     Dosage: UNK
     Route: 048
  16. ELIQUIS [Concomitant]
     Active Substance: APIXABAN
  17. UPTRAVI [Suspect]
     Active Substance: SELEXIPAG
     Indication: PULMONARY ARTERIAL HYPERTENSION
     Dosage: UNK
     Route: 048
  18. UPTRAVI [Suspect]
     Active Substance: SELEXIPAG
     Dosage: 1400 MCG, BID
     Route: 048
  19. UPTRAVI [Suspect]
     Active Substance: SELEXIPAG
     Dosage: 1600 MCG, BID
     Route: 048
  20. FERROUS SULFATE. [Concomitant]
     Active Substance: FERROUS SULFATE
     Dosage: UNK
     Dates: start: 20190825

REACTIONS (19)
  - Gastric haemorrhage [Unknown]
  - Headache [Unknown]
  - Hypotension [Unknown]
  - Goodpasture^s syndrome [Unknown]
  - Lethargy [Unknown]
  - Haemoglobin decreased [Unknown]
  - Fatigue [Unknown]
  - Diarrhoea [Unknown]
  - Decreased appetite [Unknown]
  - Malaise [Unknown]
  - Bone disorder [Unknown]
  - Atrial flutter [Unknown]
  - Rectal haemorrhage [Recovered/Resolved]
  - Hypoaesthesia [Unknown]
  - Thyroid function test abnormal [Unknown]
  - Dizziness [Unknown]
  - Pain in jaw [Unknown]
  - Asthenia [Unknown]
  - Gait disturbance [Recovered/Resolved]

NARRATIVE: CASE EVENT DATE: 20180627
